FAERS Safety Report 17052056 (Version 1)
Quarter: 2019Q4

REPORT INFORMATION
  Report Type: Spontaneous
  Country: US (occurrence: US)
  Receive Date: 20191021
  Receipt Date: 20191021
  Transmission Date: 20200122
  Serious: Yes (Hospitalization)
  Sender: FDA-Public Use
  Company Number: None

PATIENT
  Sex: Male

DRUGS (1)
  1. ERLOTINIB HYDROCHLORIDE. [Suspect]
     Active Substance: ERLOTINIB HYDROCHLORIDE
     Indication: PANCREATIC CARCINOMA
     Route: 048
     Dates: start: 20190829

REACTIONS (2)
  - Surgery [None]
  - Therapy cessation [None]
